FAERS Safety Report 5596093-9 (Version None)
Quarter: 2008Q1

REPORT INFORMATION
  Report Type: 
  Country: None (occurrence: None)
  Receive Date: 20080118
  Receipt Date: 20080111
  Transmission Date: 20080703
  Serious: Yes (Life-Threatening, Hospitalization, Disabling, Other)
  Sender: FDA-Public Use
  Company Number: TR-ABBOTT-08P-161-0433214-00

PATIENT
  Age: 46 Year
  Sex: Female
  Weight: 50 kg

DRUGS (3)
  1. KLACID MR [Suspect]
     Indication: UPPER RESPIRATORY TRACT INFECTION
     Route: 048
     Dates: start: 20080103, end: 20080103
  2. KLACID MR [Suspect]
     Route: 048
     Dates: start: 20080104, end: 20080108
  3. SERTRALINE HYDROCHLORIDE [Suspect]
     Indication: DEPRESSION
     Route: 048
     Dates: end: 20080108

REACTIONS (3)
  - INSOMNIA [None]
  - MANIA [None]
  - RESPIRATORY FAILURE [None]
